FAERS Safety Report 6338638-7 (Version None)
Quarter: 2009Q3

REPORT INFORMATION
  Report Type: 
  Country: None (occurrence: None)
  Receive Date: 20090903
  Receipt Date: 20090824
  Transmission Date: 20100115
  Serious: Yes (Hospitalization)
  Sender: FDA-Public Use
  Company Number: US-BIOGENIDEC-2009BI022446

PATIENT
  Age: 39 Year
  Sex: Female
  Weight: 102 kg

DRUGS (13)
  1. TYSABRI [Suspect]
     Indication: MULTIPLE SCLEROSIS
     Route: 042
     Dates: start: 20061121, end: 20070509
  2. SOLU-MEDROL [Concomitant]
     Indication: MULTIPLE SCLEROSIS
     Route: 042
     Dates: start: 20061101, end: 20070601
  3. ZOCOR [Concomitant]
  4. LOVENOX [Concomitant]
     Indication: THROMBOSIS PROPHYLAXIS
  5. LANTUS [Concomitant]
  6. PROVIGIL [Concomitant]
  7. COPAXONE [Concomitant]
  8. AMITRIPTYLINE [Concomitant]
  9. LEXAPRO [Concomitant]
  10. ARICEPT [Concomitant]
  11. HUMALOG [Concomitant]
  12. AMBIEN [Concomitant]
  13. STOOL SOFTENER NOS [Concomitant]
     Indication: CONSTIPATION

REACTIONS (4)
  - CEREBROVASCULAR ACCIDENT [None]
  - LETHARGY [None]
  - VEIN DISORDER [None]
  - VOMITING [None]
